FAERS Safety Report 8543104-4 (Version None)
Quarter: 2012Q3

REPORT INFORMATION
  Report Type: 
  Country: None (occurrence: None)
  Receive Date: 20120727
  Receipt Date: 20111110
  Transmission Date: 20120928
  Serious: No
  Sender: FDA-Public Use
  Company Number: US-MYLANLABS-2011S1020832

PATIENT
  Age: 48 Year
  Sex: Female

DRUGS (2)
  1. EPIPEN [Concomitant]
     Indication: HYPERSENSITIVITY
  2. LEVOTHYROXINE SODIUM [Suspect]
     Indication: HYPOTHYROIDISM
     Route: 048

REACTIONS (1)
  - FOREIGN BODY [None]
